FAERS Safety Report 24061743 (Version 1)
Quarter: 2024Q3

REPORT INFORMATION
  Report Type: Report from Study
  Country: US (occurrence: US)
  Receive Date: 20240708
  Receipt Date: 20240708
  Transmission Date: 20241017
  Serious: Yes (Other)
  Sender: PFIZER
  Company Number: US-PFIZER INC-202400205293

PATIENT
  Age: 69 Year
  Sex: Female

DRUGS (1)
  1. VYNDAMAX [Suspect]
     Active Substance: TAFAMIDIS
     Dosage: 61 MG TAKE 1 CAPSULE BY MOUTH DAILY
     Route: 048

REACTIONS (10)
  - Loss of consciousness [Unknown]
  - Dizziness postural [Unknown]
  - Joint swelling [Unknown]
  - Fall [Unknown]
  - Hypertension [Unknown]
  - Arthropathy [Unknown]
  - Pharyngeal swelling [Unknown]
  - Dysphagia [Unknown]
  - Blood potassium decreased [Unknown]
  - Pain in extremity [Unknown]
